FAERS Safety Report 10365952 (Version 1)
Quarter: 2014Q3

REPORT INFORMATION
  Report Type: Spontaneous
  Country: SG (occurrence: None)
  Receive Date: 20140804
  Receipt Date: 20140804
  Transmission Date: 20150326
  Serious: Yes (Disabling)
  Sender: FDA-Public Use
  Company Number: 2014SG00934

PATIENT

DRUGS (2)
  1. LOPINAVIR AND RITONAVIR [Suspect]
     Active Substance: LOPINAVIR\RITONAVIR
     Indication: HIV INFECTION
     Dosage: 400 MG OF LOPINAVIR AND 100 MG OF RITONAVIR, BID
  2. NUCLEOSIDE REVERSE TRANSCRIPTASE INHIBITORS [Suspect]
     Active Substance: UNSPECIFIED INGREDIENT
     Indication: HIV INFECTION

REACTIONS (1)
  - Adverse event [None]
